FAERS Safety Report 11492569 (Version 2)
Quarter: 2015Q3

REPORT INFORMATION
  Report Type: Spontaneous
  Country: JP (occurrence: JP)
  Receive Date: 20150910
  Receipt Date: 20150916
  Transmission Date: 20151125
  Serious: Yes (Other)
  Sender: FDA-Public Use
  Company Number: JP-ALLERGAN-1518308US

PATIENT
  Sex: Male

DRUGS (1)
  1. BOTOX [Suspect]
     Active Substance: ONABOTULINUMTOXINA
     Indication: VIITH NERVE PARALYSIS
     Dosage: UNK UNK, SINGLE
     Route: 030
     Dates: start: 20090905, end: 20090905

REACTIONS (7)
  - Eyelid ptosis [Unknown]
  - Palatal palsy [Unknown]
  - Ophthalmoplegia [Unknown]
  - Facial paresis [Unknown]
  - Off label use [Unknown]
  - Visual impairment [Unknown]
  - Tooth extraction [Unknown]
